FAERS Safety Report 13535522 (Version 1)
Quarter: 2017Q2

REPORT INFORMATION
  Report Type: Spontaneous
  Country: US (occurrence: US)
  Receive Date: 20170510
  Receipt Date: 20170510
  Transmission Date: 20170830
  Serious: No
  Sender: FDA-Public Use
  Company Number: None

PATIENT
  Age: 69 Year
  Sex: Male

DRUGS (4)
  1. ENBREL [Suspect]
     Active Substance: ETANERCEPT
  2. OMEPRAZOLE. [Concomitant]
     Active Substance: OMEPRAZOLE
  3. TAMSULOSIN [Concomitant]
     Active Substance: TAMSULOSIN
  4. ZOLPIDEM [Concomitant]
     Active Substance: ZOLPIDEM\ZOLPIDEM TARTRATE

REACTIONS (1)
  - Dry mouth [None]

NARRATIVE: CASE EVENT DATE: 20170101
